FAERS Safety Report 21796496 (Version 1)
Quarter: 2022Q4

REPORT INFORMATION
  Report Type: Spontaneous
  Country: US (occurrence: US)
  Receive Date: 20221229
  Receipt Date: 20221229
  Transmission Date: 20230112
  Serious: Yes (Hospitalization, Other)
  Sender: FDA-Public Use
  Company Number: US-BRISTOL-MYERS SQUIBB COMPANY-2022-160269

PATIENT
  Age: 70 Year
  Sex: Male
  Weight: 63.05 kg

DRUGS (1)
  1. REVLIMID [Suspect]
     Active Substance: LENALIDOMIDE
     Indication: Myelodysplastic syndrome
     Dosage: ONCE DAILY
     Route: 048

REACTIONS (4)
  - Haemoglobin decreased [Unknown]
  - Haematocrit decreased [Unknown]
  - Somnolence [Unknown]
  - Decreased appetite [Unknown]
